FAERS Safety Report 19671906 (Version 1)
Quarter: 2021Q3

REPORT INFORMATION
  Report Type: Spontaneous
  Country: CN (occurrence: CN)
  Receive Date: 20210806
  Receipt Date: 20210806
  Transmission Date: 20211014
  Serious: Yes (Life-Threatening, Hospitalization)
  Sender: FDA-Public Use
  Company Number: CN-BAXTER-2021BAX023646

PATIENT
  Age: 56 Year
  Sex: Male
  Weight: 67 kg

DRUGS (6)
  1. 0.9% SODIUM CHLORIDE INJECTION [Suspect]
     Active Substance: SODIUM CHLORIDE
     Indication: MEDICATION DILUTION
     Dosage: CYCLOPHOSPHAMIDE FOR INJECTION 1G + 0.9% SODIUM CHLORIDE INJECTION 100ML
     Route: 041
     Dates: start: 20210707, end: 20210707
  2. VINCRISTINE SULFATE. [Suspect]
     Active Substance: VINCRISTINE SULFATE
     Indication: SMALL CELL LUNG CANCER EXTENSIVE STAGE
     Dosage: VINCRISTINE SULFATE FOR INJECTION 2MG + 0.9% SODIUM CHLORIDE INJECTION 100ML
     Route: 041
     Dates: start: 20210707, end: 20210707
  3. 5% GLUCOSE  INJECTION [Suspect]
     Active Substance: DEXTROSE
     Indication: MEDICATION DILUTION
     Dosage: PIRARUBICIN HYDROCHLORIDE FOR INJECTION 70MG + 5% GLUCOSE INJECTION 100ML
     Route: 041
     Dates: start: 20210707, end: 20210707
  4. ENDOXAN [Suspect]
     Active Substance: CYCLOPHOSPHAMIDE
     Indication: SMALL CELL LUNG CANCER EXTENSIVE STAGE
     Dosage: CYCLOPHOSPHAMIDE FOR INJECTION 1G + 0.9% SODIUM CHLORIDE INJECTION 100ML
     Route: 041
     Dates: start: 20210707, end: 20210707
  5. 0.9% SODIUM CHLORIDE INJECTION [Suspect]
     Active Substance: SODIUM CHLORIDE
     Dosage: VINCRISTINE SULFATE FOR INJECTION 2MG + 0.9% SODIUM CHLORIDE INJECTION 100ML
     Route: 041
     Dates: start: 20210707, end: 20210707
  6. PIRARUBICIN HYDROCHLORIDE [Suspect]
     Active Substance: PIRARUBICIN HYDROCHLORIDE
     Indication: SMALL CELL LUNG CANCER EXTENSIVE STAGE
     Dosage: PIRARUBICIN HYDROCHLORIDE FOR INJECTION 70MG + 5% GLUCOSE INJECTION 100ML
     Route: 041
     Dates: start: 20210707, end: 20210707

REACTIONS (2)
  - Neutrophil count decreased [Recovered/Resolved]
  - White blood cell count decreased [Recovered/Resolved]

NARRATIVE: CASE EVENT DATE: 20210716
